APPROVED DRUG PRODUCT: MICRO-K LS
Active Ingredient: POTASSIUM CHLORIDE
Strength: 20MEQ/PACKET **Federal Register determination that product was not discontinued or withdrawn for safety or effectiveness reasons**
Dosage Form/Route: FOR SUSPENSION, EXTENDED RELEASE;ORAL
Application: N019561 | Product #003
Applicant: KV PHARMACEUTICAL CO
Approved: Aug 26, 1988 | RLD: Yes | RS: No | Type: DISCN